FAERS Safety Report 18652762 (Version 2)
Quarter: 2021Q1

REPORT INFORMATION
  Report Type: Report from Study
  Country: US (occurrence: US)
  Receive Date: 20201223
  Receipt Date: 20210312
  Transmission Date: 20210419
  Serious: No
  Sender: FDA-Public Use
  Company Number: NVSC2020US338777

PATIENT
  Sex: Female

DRUGS (2)
  1. GLATOPA [Suspect]
     Active Substance: GLATIRAMER ACETATE
     Indication: MULTIPLE SCLEROSIS
     Dosage: 40 MG, TIW
     Route: 058
  2. GLATOPA [Suspect]
     Active Substance: GLATIRAMER ACETATE
     Route: 058

REACTIONS (6)
  - Injection site pain [Unknown]
  - Urticaria [Unknown]
  - Injection site reaction [Unknown]
  - Injection site pruritus [Unknown]
  - Injection site bruising [Unknown]
  - Rash pruritic [Unknown]
